FAERS Safety Report 5064965-X (Version None)
Quarter: 2006Q3

REPORT INFORMATION
  Report Type: 
  Country: None (occurrence: None)
  Receive Date: 20060726
  Receipt Date: 20060705
  Transmission Date: 20061208
  Serious: Yes (Hospitalization, Other)
  Sender: FDA-Public Use
  Company Number: US200606000621

PATIENT
  Sex: 0
  Weight: 68 kg

DRUGS (1)
  1. ZYPREXA [Suspect]
     Dosage: 30 MG
     Dates: start: 19970101, end: 20040101

REACTIONS (17)
  - ACETONAEMIA [None]
  - BLOOD CHOLESTEROL ABNORMAL [None]
  - BLOOD TRIGLYCERIDES INCREASED [None]
  - CEREBROVASCULAR ACCIDENT [None]
  - DIABETES MELLITUS [None]
  - DIABETIC COMA [None]
  - GLUCOSE TOLERANCE IMPAIRED [None]
  - HYPERTENSION [None]
  - HYPOGLYCAEMIA [None]
  - KETONURIA [None]
  - METABOLIC DISORDER [None]
  - MITRAL VALVE PROLAPSE [None]
  - MYOCARDIAL INFARCTION [None]
  - POLYURIA [None]
  - PRESCRIBED OVERDOSE [None]
  - THROMBOSIS [None]
  - VISION BLURRED [None]
